FAERS Safety Report 9748261 (Version 1)
Quarter: 2013Q4

REPORT INFORMATION
  Report Type: Spontaneous
  Country: FR (occurrence: FR)
  Receive Date: 20131212
  Receipt Date: 20131212
  Transmission Date: 20140711
  Serious: Yes (Hospitalization, Other)
  Sender: FDA-Public Use
  Company Number: FR-JNJFOC-20131205418

PATIENT
  Age: 68 Year
  Sex: Male

DRUGS (10)
  1. XARELTO [Suspect]
     Indication: PROPHYLAXIS
     Route: 048
     Dates: start: 201211
  2. AVLOCARDYL [Concomitant]
     Route: 065
  3. COAPROVEL [Concomitant]
     Route: 065
  4. NEO-MERCAZOLE [Concomitant]
     Route: 065
  5. CRESTOR [Concomitant]
     Route: 065
  6. GLICLAZIDE [Concomitant]
     Route: 065
  7. GLUCOPHAGE [Concomitant]
     Route: 065
  8. DIFFU K [Concomitant]
     Route: 065
  9. FLECAINE [Concomitant]
     Route: 065
  10. LERCAN [Concomitant]
     Route: 065

REACTIONS (2)
  - Ischaemic stroke [Recovered/Resolved with Sequelae]
  - Product measured potency issue [Recovered/Resolved with Sequelae]
